FAERS Safety Report 25982824 (Version 1)
Quarter: 2025Q4

REPORT INFORMATION
  Report Type: Report from Study
  Country: CO (occurrence: CO)
  Receive Date: 20251031
  Receipt Date: 20251031
  Transmission Date: 20260117
  Serious: Yes (Hospitalization)
  Sender: ABBVIE
  Company Number: CO-ABBVIE-6523512

PATIENT
  Age: 52 Year
  Sex: Male
  Weight: 70 kg

DRUGS (3)
  1. RINVOQ [Suspect]
     Active Substance: UPADACITINIB
     Indication: Colitis ulcerative
     Route: 048
     Dates: start: 20250619
  2. Coveratrix [Concomitant]
     Indication: Hypertension
     Dosage: 1 TABLET EVERY 24 HOURS
     Route: 048
  3. LINAGLIPTIN\METFORMIN HYDROCHLORIDE [Concomitant]
     Active Substance: LINAGLIPTIN\METFORMIN HYDROCHLORIDE
     Indication: Diabetes mellitus
     Dosage: 1 TABLET EVERY 24 HOURS
     Route: 048

REACTIONS (5)
  - Dehydration [Unknown]
  - Diarrhoea [Recovering/Resolving]
  - Frequent bowel movements [Recovering/Resolving]
  - Electrolyte imbalance [Unknown]
  - Colitis [Unknown]

NARRATIVE: CASE EVENT DATE: 20251001
